FAERS Safety Report 11455910 (Version 1)
Quarter: 2015Q3

REPORT INFORMATION
  Report Type: Spontaneous
  Country: ES (occurrence: ES)
  Receive Date: 20150903
  Receipt Date: 20150903
  Transmission Date: 20151125
  Serious: Yes (Other)
  Sender: FDA-Public Use
  Company Number: ES-BANPHARM-20154184

PATIENT
  Age: 49 Year
  Sex: Female

DRUGS (1)
  1. IBUPROFEN UNKNOWN PRODUCT [Suspect]
     Active Substance: IBUPROFEN
     Indication: HEADACHE
     Dosage: DF 600MG,

REACTIONS (1)
  - Anaphylactic reaction [Recovered/Resolved]
